FAERS Safety Report 17114112 (Version 1)
Quarter: 2019Q4

REPORT INFORMATION
  Report Type: Spontaneous
  Country: CN (occurrence: CN)
  Receive Date: 20191205
  Receipt Date: 20191205
  Transmission Date: 20200122
  Serious: Yes (Hospitalization, Other)
  Sender: FDA-Public Use
  Company Number: CN-BAXTER-2019BAX024466

PATIENT
  Age: 57 Year
  Sex: Female
  Weight: 50 kg

DRUGS (18)
  1. 5% GLUCOSE  INJECTION [Suspect]
     Active Substance: DEXTROSE
     Dosage: DOSE RE-INTRODUCED?RITUXIMAB + 5% GLUCOSE
     Route: 041
     Dates: start: 201911
  2. ETOPOSIDE. [Suspect]
     Active Substance: ETOPOSIDE
     Indication: DIFFUSE LARGE B-CELL LYMPHOMA
     Dosage: ETOPOSIDE (100MG) + 0.9% SODIUM CHLORIDE (NS) (500ML), RECOP CHEMOTHERAPY
     Route: 041
     Dates: start: 20191021, end: 20191023
  3. 0.9% SODIUM CHLORIDE INJECTION [Suspect]
     Active Substance: SODIUM CHLORIDE
     Dosage: ETOPOSIDE (100MG) + 0.9% SODIUM CHLORIDE (NS) (500ML), RECOP CHEMOTHERAPY
     Route: 041
     Dates: start: 20191021, end: 20191023
  4. RITUXIMAB. [Suspect]
     Active Substance: RITUXIMAB
     Dosage: DOSE RE-INTRODUCED?RITUXIMAB + 5% GLUCOSE
     Route: 041
     Dates: start: 201911
  5. 5% GLUCOSE  INJECTION [Suspect]
     Active Substance: DEXTROSE
     Indication: MEDICATION DILUTION
     Dosage: RITUXIMAB (0.5G) + 5% GLUCOSE (500ML), RECOP CHEMOTHERAPY
     Route: 041
     Dates: start: 20191018, end: 20191018
  6. ENDOXAN [Suspect]
     Active Substance: CYCLOPHOSPHAMIDE
     Indication: DIFFUSE LARGE B-CELL LYMPHOMA
     Dosage: CYCLOPHOSPHAMIDE (1G) + 0.9% SODIUM CHLORIDE (NS) (40ML), RECOP CHEMOTHERAPY
     Route: 041
     Dates: start: 20191019, end: 20191019
  7. 0.9% SODIUM CHLORIDE INJECTION [Suspect]
     Active Substance: SODIUM CHLORIDE
     Dosage: DOSE RE-INTRODUCED?CYCLOPHOSPHAMIDE + 0.9% SODIUM CHLORIDE (NS)
     Route: 041
     Dates: start: 201911
  8. VINCRISTINE SULFATE. [Suspect]
     Active Substance: VINCRISTINE SULFATE
     Dosage: DOSE RE-INTRODUCED?VINCRISTINE SULFATE + 0.9% SODIUM CHLORIDE (NS)
     Route: 041
     Dates: start: 201911
  9. 0.9% SODIUM CHLORIDE INJECTION [Suspect]
     Active Substance: SODIUM CHLORIDE
     Dosage: DOSE RE-INTRODUCED ?VINCRISTINE SULFATE + 0.9% SODIUM CHLORIDE (NS)
     Route: 041
     Dates: start: 201911
  10. RITUXIMAB. [Suspect]
     Active Substance: RITUXIMAB
     Indication: DIFFUSE LARGE B-CELL LYMPHOMA
     Dosage: RITUXIMAB (0.5G) + 5% GLUCOSE (500ML), RECOP CHEMOTHERAPY
     Route: 041
     Dates: start: 20191018, end: 20191018
  11. RECOMBINANT HUMAN GRANULOCYTE COLONY-STIMULATING FACTOR [Concomitant]
     Active Substance: GRANULOCYTE COLONY-STIMULATING FACTOR NOS
     Indication: WHITE BLOOD CELL COUNT DECREASED
     Route: 058
     Dates: start: 20191015, end: 20191016
  12. 0.9% SODIUM CHLORIDE INJECTION [Suspect]
     Active Substance: SODIUM CHLORIDE
     Indication: MEDICATION DILUTION
     Dosage: CYCLOPHOSPHAMIDE (1G) + 0.9% SODIUM CHLORIDE (NS) (40ML), RECOP CHEMOTHERAPY
     Route: 041
     Dates: start: 20191019, end: 20191019
  13. 0.9% SODIUM CHLORIDE INJECTION [Suspect]
     Active Substance: SODIUM CHLORIDE
     Dosage: DOSE RE-INTRODUCED ?ETOPOSIDE + 0.9% SODIUM CHLORIDE (NS)
     Route: 041
     Dates: start: 201911
  14. PREDNISONE ACETATE [Suspect]
     Active Substance: PREDNISONE ACETATE
     Indication: DIFFUSE LARGE B-CELL LYMPHOMA
     Dosage: TABLETS, ECOP CHEMOTHERAPY
     Route: 048
     Dates: start: 20191019, end: 20191023
  15. ENDOXAN [Suspect]
     Active Substance: CYCLOPHOSPHAMIDE
     Dosage: DOSE RE-INTRODUCED?CYCLOPHOSPHAMIDE + 0.9% SODIUM CHLORIDE (NS)
     Route: 041
     Dates: start: 201911
  16. 0.9% SODIUM CHLORIDE INJECTION [Suspect]
     Active Substance: SODIUM CHLORIDE
     Dosage: VINCRISTINE SULFATE (2MG) + 0.9% SODIUM CHLORIDE (NS) (40ML), RECOP CHEMOTHERAPY
     Route: 041
     Dates: start: 20191019, end: 20191019
  17. ETOPOSIDE. [Suspect]
     Active Substance: ETOPOSIDE
     Dosage: DOSE RE-INTRODUCED?ETOPOSIDE + 0.9% SODIUM CHLORIDE (NS)
     Route: 041
     Dates: start: 201911
  18. VINCRISTINE SULFATE. [Suspect]
     Active Substance: VINCRISTINE SULFATE
     Indication: DIFFUSE LARGE B-CELL LYMPHOMA
     Dosage: VINCRISTINE SULFATE (2MG) + 0.9% SODIUM CHLORIDE (NS) (40ML), RECOP CHEMOTHERAPY
     Route: 041
     Dates: start: 20191019, end: 20191019

REACTIONS (1)
  - Bone marrow failure [Recovering/Resolving]

NARRATIVE: CASE EVENT DATE: 20191106
